FAERS Safety Report 10211685 (Version 1)
Quarter: 2014Q2

REPORT INFORMATION
  Report Type: Spontaneous
  Country: DE (occurrence: DE)
  Receive Date: 20140602
  Receipt Date: 20140602
  Transmission Date: 20141212
  Serious: Yes (Death, Hospitalization)
  Sender: FDA-Public Use
  Company Number: DE-B.I. PHARMACEUTICALS,INC./RIDGEFIELD-2014-BI-24409DE

PATIENT
  Age: 72 Year
  Sex: Male

DRUGS (2)
  1. DABIGATRAN [Suspect]
     Indication: ATRIAL FIBRILLATION
     Dosage: 2 ANZ
     Route: 048
     Dates: start: 20140128
  2. MONOEMBOLEX [Suspect]
     Indication: PRODUCT USED FOR UNKNOWN INDICATION
     Route: 058

REACTIONS (6)
  - Cerebral infarction [Fatal]
  - Cerebrovascular accident [Fatal]
  - Hemiparesis [Unknown]
  - Visual impairment [Unknown]
  - Haemorrhage [Unknown]
  - Urinary bladder haemorrhage [Unknown]
